FAERS Safety Report 8465211-7 (Version None)
Quarter: 2012Q2

REPORT INFORMATION
  Report Type: 
  Country: None (occurrence: None)
  Receive Date: 20120626
  Receipt Date: 20120620
  Transmission Date: 20120825
  Serious: Yes (Other)
  Sender: FDA-Public Use
  Company Number: PHHY2012FR053381

PATIENT
  Sex: Female

DRUGS (7)
  1. SANDIMMUNE [Interacting]
     Dosage: 200 MG, QD
     Dates: start: 20120605
  2. SANDIMMUNE [Interacting]
     Dosage: 150 MG, QD
     Dates: start: 20120604, end: 20120605
  3. HEPARIN [Concomitant]
  4. SANDIMMUNE [Suspect]
     Dosage: 75 MG, QD
     Dates: start: 20120512, end: 20120603
  5. SANDIMMUNE [Interacting]
     Dosage: 100 MG, QD
     Dates: start: 20120603, end: 20120604
  6. SANDIMMUNE [Interacting]
     Dosage: 50 MG, QD
  7. ARGATROBAN [Interacting]
     Dosage: 50 MG, QD
     Dates: start: 20120601, end: 20120603

REACTIONS (3)
  - OVERDOSE [None]
  - IMMUNOSUPPRESSANT DRUG LEVEL DECREASED [None]
  - DRUG INTERACTION [None]
